FAERS Safety Report 9664689 (Version 1)
Quarter: 2013Q4

REPORT INFORMATION
  Report Type: Spontaneous
  Country: US (occurrence: US)
  Receive Date: 20131101
  Receipt Date: 20131101
  Transmission Date: 20140711
  Serious: Yes (Hospitalization)
  Sender: FDA-Public Use
  Company Number: US-CELGENEUS-163-20785-13105025

PATIENT
  Sex: Female

DRUGS (2)
  1. THALOMID [Suspect]
     Indication: BEHCET^S SYNDROME
     Dosage: 50 MILLIGRAM
     Route: 048
     Dates: start: 200108
  2. THALOMID [Suspect]
     Dosage: 100 MILLIGRAM
     Route: 048
     Dates: start: 200408

REACTIONS (5)
  - Visual impairment [Unknown]
  - Diarrhoea haemorrhagic [Unknown]
  - Vomiting [Unknown]
  - Asthenia [Unknown]
  - Dizziness [Unknown]
